FAERS Safety Report 15450500 (Version 1)
Quarter: 2018Q4

REPORT INFORMATION
  Report Type: Spontaneous
  Country: JP (occurrence: JP)
  Receive Date: 20181001
  Receipt Date: 20181001
  Transmission Date: 20190204
  Serious: Yes (Other)
  Sender: FDA-Public Use
  Company Number: JP-ELI_LILLY_AND_COMPANY-JP201809008758

PATIENT
  Age: 76 Year
  Sex: Male

DRUGS (3)
  1. GEMZAR [Suspect]
     Active Substance: GEMCITABINE HYDROCHLORIDE
     Dosage: UNK UNK, CYCLICAL
     Route: 041
  2. CISPLATIN. [Concomitant]
     Active Substance: CISPLATIN
     Indication: GALLBLADDER CANCER RECURRENT
     Dosage: UNK UNK, CYCLICAL
     Route: 041
  3. GEMZAR [Suspect]
     Active Substance: GEMCITABINE HYDROCHLORIDE
     Indication: GALLBLADDER CANCER RECURRENT
     Dosage: UNK UNK, CYCLICAL
     Route: 041

REACTIONS (1)
  - Lung disorder [Unknown]
